FAERS Safety Report 24944962 (Version 1)
Quarter: 2025Q1

REPORT INFORMATION
  Report Type: Spontaneous
  Country: US (occurrence: US)
  Receive Date: 20250208
  Receipt Date: 20250208
  Transmission Date: 20250408
  Serious: No
  Sender: ROCHE
  Company Number: US-ROCHE-10000196497

PATIENT
  Age: 69 Year
  Sex: Female

DRUGS (1)
  1. XOLAIR [Suspect]
     Active Substance: OMALIZUMAB
     Indication: Product used for unknown indication
     Route: 058

REACTIONS (6)
  - Product dose omission issue [Unknown]
  - Exposure via skin contact [Unknown]
  - Device use error [Unknown]
  - No adverse event [Unknown]
  - Device malfunction [Unknown]
  - Device defective [Unknown]

NARRATIVE: CASE EVENT DATE: 20250128
